FAERS Safety Report 11677449 (Version 1)
Quarter: 2015Q4

REPORT INFORMATION
  Report Type: Spontaneous
  Country: US (occurrence: US)
  Receive Date: 20151028
  Receipt Date: 20151028
  Transmission Date: 20160304
  Serious: No
  Sender: FDA-Public Use
  Company Number: US-VIIV HEALTHCARE LIMITED-US2015150889

PATIENT

DRUGS (1)
  1. SELZENTRY [Suspect]
     Active Substance: MARAVIROC
     Dosage: 150 MG, U
     Dates: start: 2009

REACTIONS (2)
  - Drug administration error [Unknown]
  - Wrong technique in product usage process [Unknown]
